FAERS Safety Report 8115542-5 (Version None)
Quarter: 2012Q1

REPORT INFORMATION
  Report Type: 
  Country: None (occurrence: None)
  Receive Date: 20120206
  Receipt Date: 20120124
  Transmission Date: 20120608
  Serious: Yes (Hospitalization)
  Sender: FDA-Public Use
  Company Number: US-ELI_LILLY_AND_COMPANY-US201201008260

PATIENT
  Sex: Female

DRUGS (2)
  1. FORTEO [Suspect]
     Indication: OSTEOPOROSIS
     Dosage: UNK
  2. WELLBUTRIN [Concomitant]

REACTIONS (7)
  - WEIGHT DECREASED [None]
  - ANXIETY [None]
  - NERVOUSNESS [None]
  - DIZZINESS [None]
  - HEART RATE INCREASED [None]
  - AMNESIA [None]
  - NAUSEA [None]
